FAERS Safety Report 6761251-4 (Version None)
Quarter: 2010Q2

REPORT INFORMATION
  Report Type: 
  Country: None (occurrence: None)
  Receive Date: 20100608
  Receipt Date: 20100603
  Transmission Date: 20101027
  Serious: Yes (Life-Threatening, Other)
  Sender: FDA-Public Use
  Company Number: JP-ROXANE LABORATORIES, INC.-2010-RO-00446RO

PATIENT
  Age: 18 Year
  Sex: Female
  Weight: 50 kg

DRUGS (12)
  1. MORPHINE [Suspect]
     Indication: PAIN
     Route: 058
  2. DIAZEPAM [Suspect]
     Indication: CATATONIA
     Route: 042
  3. PROPOFOL [Suspect]
     Indication: GENERAL ANAESTHESIA
  4. PROPOFOL [Suspect]
     Indication: SEDATION
  5. PROPOFOL [Suspect]
  6. FENTANYL [Suspect]
     Indication: GENERAL ANAESTHESIA
  7. ROPIVACAINE HYDROCHLORIDE [Suspect]
     Indication: PAIN
     Route: 058
  8. DROPERIDOL [Suspect]
     Indication: PAIN
     Route: 058
  9. HALOPERIDOL [Suspect]
     Indication: SEDATION
     Dosage: 5 MG
     Route: 042
  10. DANTROLENE [Suspect]
     Indication: NEUROLEPTIC MALIGNANT SYNDROME
     Route: 042
  11. DEXMEDETOMIDINE HYDROCHLORIDE [Suspect]
     Indication: SEDATION
  12. DEXMEDETOMIDINE HYDROCHLORIDE [Suspect]
     Indication: ANALGESIC THERAPY

REACTIONS (9)
  - AGITATION [None]
  - ANXIETY [None]
  - CATATONIA [None]
  - DYSPNOEA [None]
  - HYPERHIDROSIS [None]
  - PSYCHOMOTOR HYPERACTIVITY [None]
  - PYREXIA [None]
  - TACHYCARDIA [None]
  - TACHYPNOEA [None]
